FAERS Safety Report 7023290-8 (Version None)
Quarter: 2010Q3

REPORT INFORMATION
  Report Type: 
  Country: None (occurrence: None)
  Receive Date: 20100930
  Receipt Date: 20100928
  Transmission Date: 20110219
  Serious: Yes (Death)
  Sender: FDA-Public Use
  Company Number: GB-AMGEN-US291082

PATIENT
  Sex: Male
  Weight: 52 kg

DRUGS (8)
  1. ENBREL [Suspect]
     Indication: RHEUMATOID ARTHRITIS
     Route: 058
     Dates: start: 20030515
  2. SECTRAL [Concomitant]
     Dosage: UNKNOWN
  3. AMIODARONE [Concomitant]
     Dosage: UNKNOWN
  4. FOLIC ACID [Concomitant]
     Dosage: UNKNOWN
  5. METHOTREXATE [Concomitant]
     Dosage: UNKNOWN
     Dates: start: 20040715, end: 20040915
  6. ALENDRONATE SODIUM [Concomitant]
     Indication: OSTEOPOROSIS
     Route: 048
     Dates: start: 20050801
  7. ASCORBIC ACID [Concomitant]
     Dosage: UNKNOWN
  8. FERROUS SULFATE [Concomitant]
     Dosage: UNKNOWN

REACTIONS (3)
  - ATRIAL FIBRILLATION [None]
  - MULTIPLE MYELOMA [None]
  - RESPIRATORY TRACT INFECTION [None]
